FAERS Safety Report 23109851 (Version 1)
Quarter: 2023Q4

REPORT INFORMATION
  Report Type: Spontaneous
  Country: US (occurrence: None)
  Receive Date: 20231024
  Receipt Date: 20231024
  Transmission Date: 20240109
  Serious: Yes (Hospitalization)
  Sender: FDA-Public Use
  Company Number: None

PATIENT
  Age: 74 Year
  Sex: Male
  Weight: 137 kg

DRUGS (1)
  1. IMIPRAMINE HYDROCHLORIDE [Suspect]
     Active Substance: IMIPRAMINE HYDROCHLORIDE
     Dosage: FREQUENCY : AT BEDTIME;?
     Route: 048
     Dates: start: 20210811, end: 20220214

REACTIONS (5)
  - Fatigue [None]
  - Hyponatraemia [None]
  - Lethargy [None]
  - Syncope [None]
  - Hypoglycaemia [None]

NARRATIVE: CASE EVENT DATE: 20220224
